FAERS Safety Report 19417026 (Version 1)
Quarter: 2021Q2

REPORT INFORMATION
  Report Type: Spontaneous
  Country: US (occurrence: US)
  Receive Date: 20210614
  Receipt Date: 20210614
  Transmission Date: 20210717
  Serious: Yes (Death)
  Sender: FDA-Public Use
  Company Number: None

PATIENT
  Age: 90 Year
  Sex: Male
  Weight: 121 kg

DRUGS (1)
  1. WARFARIN (WARFARIN NA 5MG TAB) [Suspect]
     Active Substance: WARFARIN SODIUM
     Indication: ATRIAL FIBRILLATION
     Dates: start: 20151118, end: 20201021

REACTIONS (3)
  - Haemorrhage intracranial [None]
  - Back pain [None]
  - Subdural haematoma [None]

NARRATIVE: CASE EVENT DATE: 20201021
